FAERS Safety Report 5367332-4 (Version None)
Quarter: 2007Q2

REPORT INFORMATION
  Report Type: 
  Country: None (occurrence: None)
  Receive Date: 20070622
  Receipt Date: 20060501
  Transmission Date: 20071010
  Serious: No
  Sender: FDA-Public Use
  Company Number: US-ASTRAZENECA-2006UW08428

PATIENT
  Age: 60 Year
  Sex: Female
  Weight: 113.4 kg

DRUGS (9)
  1. PULMICORT RESPULES [Suspect]
     Indication: INFLUENZA
     Route: 055
     Dates: start: 20060417, end: 20060427
  2. PULMICORT RESPULES [Suspect]
     Route: 055
     Dates: start: 20060427
  3. QVAR 40 [Concomitant]
  4. ADVAIR DISKUS 100/50 [Concomitant]
  5. GLUCOPHAGE [Concomitant]
  6. ZAROXOLYN [Concomitant]
  7. BENICAR [Concomitant]
  8. PROTONIX [Concomitant]
  9. BYETA [Concomitant]

REACTIONS (3)
  - DRUG INEFFECTIVE [None]
  - NASAL CONGESTION [None]
  - SKIN BURNING SENSATION [None]
